FAERS Safety Report 9228055 (Version 1)
Quarter: 2013Q2

REPORT INFORMATION
  Report Type: Spontaneous
  Country: US (occurrence: US)
  Receive Date: 20130412
  Receipt Date: 20130412
  Transmission Date: 20140414
  Serious: No
  Sender: FDA-Public Use
  Company Number: US-GLAXOSMITHKLINE-A1011674A

PATIENT
  Sex: Male

DRUGS (3)
  1. JALYN [Suspect]
     Indication: BENIGN PROSTATIC HYPERPLASIA
     Dosage: 1CAP PER DAY
     Route: 048
  2. METOPROLOL [Concomitant]
  3. CIPROFLOXACIN [Concomitant]

REACTIONS (3)
  - Penile swelling [Recovering/Resolving]
  - Penile blister [Unknown]
  - Penile pain [Unknown]
